FAERS Safety Report 7336623-X (Version None)
Quarter: 2011Q1

REPORT INFORMATION
  Report Type: 
  Country: None (occurrence: None)
  Receive Date: 20110307
  Receipt Date: 20110223
  Transmission Date: 20110831
  Serious: Yes (Other)
  Sender: FDA-Public Use
  Company Number: BE-BRISTOL-MYERS SQUIBB COMPANY-15573314

PATIENT
  Sex: Female

DRUGS (1)
  1. ONGLYZA [Suspect]
     Dosage: ADMINISTERD BETWEEN JULY AND DEC 2010

REACTIONS (1)
  - PANCREATITIS [None]
